FAERS Safety Report 11534897 (Version 1)
Quarter: 2015Q3

REPORT INFORMATION
  Report Type: Spontaneous
  Country: PT (occurrence: PT)
  Receive Date: 20150922
  Receipt Date: 20150922
  Transmission Date: 20151125
  Serious: Yes (Other)
  Sender: FDA-Public Use
  Company Number: PT-BAYER-2015-425034

PATIENT
  Age: 37 Year
  Sex: Female
  Weight: 78 kg

DRUGS (3)
  1. HYDROCORTISONE [HYDROCORTISONE] [Concomitant]
     Indication: PREMEDICATION
     Dates: start: 20150831
  2. ULTRAVIST [Suspect]
     Active Substance: IOPROMIDE
     Dates: start: 20150831
  3. CLEMASTINE [Concomitant]
     Active Substance: CLEMASTINE
     Indication: PREMEDICATION
     Dates: start: 20150831

REACTIONS (2)
  - Papule [Recovered/Resolved]
  - Urticaria [Recovered/Resolved]

NARRATIVE: CASE EVENT DATE: 20150831
